FAERS Safety Report 7965344-5 (Version None)
Quarter: 2011Q4

REPORT INFORMATION
  Report Type: 
  Country: None (occurrence: None)
  Receive Date: 20111205
  Receipt Date: 20111123
  Transmission Date: 20120403
  Serious: Yes (Other)
  Sender: FDA-Public Use
  Company Number: ABR_00304_2011

PATIENT
  Sex: Female

DRUGS (2)
  1. KEPPRA [Concomitant]
  2. ERYTHROMYCIN [Suspect]
     Indication: PRODUCT USED FOR UNKNOWN INDICATION
     Dosage: (250 MG (10 DOSAGE FORMS) ORAL)
     Route: 048

REACTIONS (3)
  - ABDOMINAL DISCOMFORT [None]
  - NAUSEA [None]
  - OVERDOSE [None]
